FAERS Safety Report 6600472-8 (Version None)
Quarter: 2010Q1

REPORT INFORMATION
  Report Type: 
  Country: None (occurrence: None)
  Receive Date: 20100223
  Receipt Date: 20100223
  Transmission Date: 20100710
  Serious: No
  Sender: FDA-Public Use
  Company Number: None

PATIENT
  Age: 44 Year
  Sex: Female

DRUGS (1)
  1. LISINOPRIL [Suspect]
     Indication: HYPERTENSION
     Dosage: 20MG QDAY PO }2 YEARS
     Route: 048

REACTIONS (3)
  - FLUSHING [None]
  - PHARYNGEAL OEDEMA [None]
  - SWELLING FACE [None]
